FAERS Safety Report 4727095-X (Version None)
Quarter: 2005Q3

REPORT INFORMATION
  Report Type: 
  Country: None (occurrence: None)
  Receive Date: 20050728
  Receipt Date: 20050719
  Transmission Date: 20060218
  Serious: Yes (Hospitalization)
  Sender: FDA-Public Use
  Company Number: JP-JNJFOC-20050704504

PATIENT
  Sex: Male

DRUGS (9)
  1. RISPERDAL [Suspect]
     Indication: SCHIZOPHRENIA
     Route: 048
  2. MEDAZEPAM [Suspect]
     Indication: ANXIETY
     Route: 048
  3. FLUNITRAZEPAM [Suspect]
     Route: 048
  4. ISOSORBIDE DINITRATE [Concomitant]
     Route: 048
  5. DIPYRIDAMOLE [Concomitant]
     Route: 048
  6. DIGOXIN [Concomitant]
     Indication: CARDIAC FAILURE
     Route: 048
  7. FUROSEMIDE [Concomitant]
     Indication: CARDIAC FAILURE
     Route: 048
  8. VOGLIBOSE [Concomitant]
     Indication: DIABETES MELLITUS
     Route: 048
  9. LEVOMEPROMAZINE MALEATE [Concomitant]
     Route: 048

REACTIONS (3)
  - CARDIAC FAILURE [None]
  - DIABETES MELLITUS [None]
  - FEMORAL NECK FRACTURE [None]
